FAERS Safety Report 12807245 (Version 2)
Quarter: 2017Q1

REPORT INFORMATION
  Report Type: Report from Study
  Country: CA (occurrence: CA)
  Receive Date: 20161004
  Receipt Date: 20170208
  Transmission Date: 20170428
  Serious: Yes (Death, Hospitalization)
  Sender: FDA-Public Use
  Company Number: CA-HLSUS-2016-CA-000500

PATIENT
  Age: 56 Year
  Sex: Male

DRUGS (1)
  1. CLOZARIL [Suspect]
     Active Substance: CLOZAPINE
     Dosage: 500 MG HS
     Route: 048

REACTIONS (3)
  - Cardiac arrest [Fatal]
  - Pneumonia [Fatal]
  - Antipsychotic drug level increased [Unknown]

NARRATIVE: CASE EVENT DATE: 20160901
